FAERS Safety Report 15881859 (Version 1)
Quarter: 2019Q1

REPORT INFORMATION
  Report Type: Spontaneous
  Country: US (occurrence: US)
  Receive Date: 20190128
  Receipt Date: 20190128
  Transmission Date: 20190417
  Serious: No
  Sender: FDA-Public Use
  Company Number: US-SA-2019SA022309

PATIENT
  Age: 59 Year
  Sex: Female

DRUGS (1)
  1. PRALUENT [Suspect]
     Active Substance: ALIROCUMAB
     Dosage: 75 MG, QOW
     Route: 058
     Dates: start: 20181201

REACTIONS (7)
  - Blister [Not Recovered/Not Resolved]
  - Ulcer [Not Recovered/Not Resolved]
  - Oropharyngeal pain [Unknown]
  - Injection site haemorrhage [Not Recovered/Not Resolved]
  - Diarrhoea [Unknown]
  - Injection site bruising [Not Recovered/Not Resolved]
  - Injection site pain [Not Recovered/Not Resolved]

NARRATIVE: CASE EVENT DATE: 20181201
